FAERS Safety Report 4771644-2 (Version None)
Quarter: 2005Q3

REPORT INFORMATION
  Report Type: 
  Country: None (occurrence: None)
  Receive Date: 20050916
  Receipt Date: 20030407
  Transmission Date: 20060218
  Serious: Yes (Hospitalization, Other)
  Sender: FDA-Public Use
  Company Number: GB-AMGEN-US035253

PATIENT
  Sex: Female

DRUGS (3)
  1. ENBREL [Suspect]
     Indication: OVARIAN CANCER
     Route: 058
     Dates: start: 20020807, end: 20030403
  2. AMOXICILLIN [Suspect]
     Route: 048
     Dates: start: 20030101
  3. ZOTON [Concomitant]
     Dates: start: 20020801

REACTIONS (9)
  - DIFFICULTY IN WALKING [None]
  - ERYTHEMA [None]
  - HYPERGLOBULINAEMIA [None]
  - JOINT SWELLING [None]
  - SENSORY LOSS [None]
  - SJOGREN'S SYNDROME [None]
  - SKIN DISCOLOURATION [None]
  - SKIN NODULE [None]
  - VIRAL INFECTION [None]
